FAERS Safety Report 19082436 (Version 2)
Quarter: 2025Q4

REPORT INFORMATION
  Report Type: Spontaneous
  Country: US (occurrence: US)
  Receive Date: 20210401
  Receipt Date: 20251215
  Transmission Date: 20260117
  Serious: Yes (Life-Threatening, Other)
  Sender: JOHNSON AND JOHNSON
  Company Number: US-MLMSERVICE-20210322-2784006-1

PATIENT
  Age: 75 Year
  Sex: Male

DRUGS (8)
  1. SPORANOX [Suspect]
     Active Substance: ITRACONAZOLE
     Indication: Histoplasmosis disseminated
  2. DENOSUMAB [Suspect]
     Active Substance: DENOSUMAB
     Indication: Histoplasmosis disseminated
  3. PREDNISONE [Concomitant]
     Active Substance: PREDNISONE
     Indication: Histoplasmosis disseminated
  4. CARFILZOMIB [Concomitant]
     Active Substance: CARFILZOMIB
     Indication: Plasma cell myeloma
  5. POMALIDOMIDE [Concomitant]
     Active Substance: POMALIDOMIDE
     Indication: Plasma cell myeloma
  6. DEXAMETHASONE [Concomitant]
     Active Substance: DEXAMETHASONE
     Indication: Plasma cell myeloma
  7. ZOLEDRONIC ACID [Concomitant]
     Active Substance: ZOLEDRONIC ACID
     Indication: Hypercalcaemia
  8. CALCITONIN [Concomitant]
     Active Substance: CALCITONIN
     Indication: Hypercalcaemia

REACTIONS (2)
  - Left ventricular failure [Unknown]
  - Ejection fraction decreased [Unknown]
